FAERS Safety Report 20786390 (Version 1)
Quarter: 2022Q2

REPORT INFORMATION
  Report Type: Spontaneous
  Country: US (occurrence: None)
  Receive Date: 20220504
  Receipt Date: 20220504
  Transmission Date: 20220720
  Serious: No
  Sender: FDA-Public Use
  Company Number: US-ROCHE-3047037

PATIENT
  Sex: Female
  Weight: 61.290 kg

DRUGS (2)
  1. OCREVUS [Suspect]
     Active Substance: OCRELIZUMAB
     Indication: Relapsing-remitting multiple sclerosis
     Dosage: HER LAST DOSE OF OCREVUS WAS IN /OCT/2021 AND HER NEXT IS DUE IN /APR/2022
     Route: 042
     Dates: start: 2019
  2. COPAXONE [Concomitant]
     Active Substance: GLATIRAMER ACETATE

REACTIONS (1)
  - Therapeutic response shortened [Unknown]
